FAERS Safety Report 6810927-9 (Version None)
Quarter: 2010Q2

REPORT INFORMATION
  Report Type: 
  Country: None (occurrence: None)
  Receive Date: 20100630
  Receipt Date: 20080912
  Transmission Date: 20101027
  Serious: No
  Sender: FDA-Public Use
  Company Number: US-PFIZER INC-2008074603

PATIENT
  Sex: Male
  Weight: 81.8 kg

DRUGS (4)
  1. NICOTROL [Suspect]
     Indication: SMOKING CESSATION THERAPY
  2. TRAMADOL [Concomitant]
  3. LOVASTATIN [Concomitant]
  4. BUPROPION HCL [Concomitant]

REACTIONS (3)
  - COUGH [None]
  - DRUG EFFECT DECREASED [None]
  - DYSPHONIA [None]
